FAERS Safety Report 5385104-1 (Version None)
Quarter: 2007Q3

REPORT INFORMATION
  Report Type: 
  Country: None (occurrence: None)
  Receive Date: 20070706
  Receipt Date: 20070706
  Transmission Date: 20080115
  Serious: Yes (Other)
  Sender: FDA-Public Use
  Company Number: None

PATIENT
  Sex: Female
  Weight: 88.905 kg

DRUGS (12)
  1. GABAPENTIN [Suspect]
     Indication: BACK PAIN
     Dosage: 300MG HS PO
     Route: 048
     Dates: start: 20061130, end: 20061205
  2. EFFEXOR XR [Concomitant]
  3. VICODIN [Concomitant]
  4. IBU [Concomitant]
  5. HYDROXYZINE [Concomitant]
  6. LEVOXYL [Concomitant]
  7. BUSPIRONE [Concomitant]
  8. TRAZODONE HCL [Concomitant]
  9. DITROPAN XL [Concomitant]
  10. CAPTOPRIL [Concomitant]
  11. CYCLOBENZAPRINE HCL [Concomitant]
  12. OMEPRAZOLE [Concomitant]

REACTIONS (1)
  - CONVULSION [None]
